FAERS Safety Report 9335585 (Version 1)
Quarter: 2013Q2

REPORT INFORMATION
  Report Type: Spontaneous
  Country: GB (occurrence: GB)
  Receive Date: 20130605
  Receipt Date: 20130605
  Transmission Date: 20140414
  Serious: Yes (Other)
  Sender: FDA-Public Use
  Company Number: GB-ACTAVIS-2013-09632

PATIENT
  Age: 80 Year
  Sex: Male

DRUGS (1)
  1. SPIRONOLACTONE (UNKNOWN) [Suspect]
     Indication: CARDIAC FAILURE CONGESTIVE
     Dosage: UNK
     Route: 065

REACTIONS (3)
  - Prostate cancer metastatic [Recovering/Resolving]
  - Condition aggravated [Recovering/Resolving]
  - Prostate cancer [None]
